FAERS Safety Report 13500770 (Version 2)
Quarter: 2017Q2

REPORT INFORMATION
  Report Type: Spontaneous
  Country: US (occurrence: US)
  Receive Date: 20170501
  Receipt Date: 20170614
  Transmission Date: 20170830
  Serious: No
  Sender: FDA-Public Use
  Company Number: US-BEH-2017079958

PATIENT
  Age: 39 Year
  Sex: Female

DRUGS (2)
  1. HIZENTRA [Suspect]
     Active Substance: HUMAN IMMUNOGLOBULIN G
     Dosage: 12 G (60ML), QOW
     Route: 058
     Dates: start: 20170201
  2. HIZENTRA [Suspect]
     Active Substance: HUMAN IMMUNOGLOBULIN G
     Indication: CHRONIC SINUSITIS
     Dosage: 12 G, QOW
     Route: 058
     Dates: start: 20170222

REACTIONS (5)
  - Infusion site extravasation [Unknown]
  - Headache [Recovering/Resolving]
  - Infusion site nodule [Unknown]
  - Infusion site haemorrhage [Unknown]
  - Urticaria [Unknown]

NARRATIVE: CASE EVENT DATE: 20170424
